FAERS Safety Report 20453812 (Version 2)
Quarter: 2022Q1

REPORT INFORMATION
  Report Type: Report from Study
  Country: CA (occurrence: CA)
  Receive Date: 20220210
  Receipt Date: 20220218
  Transmission Date: 20220423
  Serious: Yes (Other)
  Sender: FDA-Public Use
  Company Number: CA-JNJFOC-20220217705

PATIENT
  Age: 53 Year
  Sex: Female
  Weight: 55 kg

DRUGS (3)
  1. REMICADE [Suspect]
     Active Substance: INFLIXIMAB
     Indication: Crohn^s disease
     Route: 042
     Dates: start: 20190408
  2. REMICADE [Suspect]
     Active Substance: INFLIXIMAB
     Dosage: RE-LOAD
     Route: 042
  3. SODIUM CHLORIDE [Concomitant]
     Active Substance: SODIUM CHLORIDE
     Indication: Prophylaxis
     Dosage: TKVO
     Route: 065

REACTIONS (3)
  - Infusion related reaction [Recovered/Resolved]
  - COVID-19 [Recovered/Resolved]
  - Decreased appetite [Recovered/Resolved]

NARRATIVE: CASE EVENT DATE: 20220101
